FAERS Safety Report 13447166 (Version 1)
Quarter: 2017Q2

REPORT INFORMATION
  Report Type: Spontaneous
  Country: US (occurrence: US)
  Receive Date: 20170415
  Receipt Date: 20170415
  Transmission Date: 20170830
  Serious: Yes (Disabling)
  Sender: FDA-Public Use
  Company Number: None

PATIENT
  Age: 41 Year
  Sex: Female
  Weight: 166.5 kg

DRUGS (8)
  1. METOPROLOL TARTRATE. [Concomitant]
     Active Substance: METOPROLOL TARTRATE
  2. TRIAMTERERE W/HCTZ [Concomitant]
  3. QUINAPRIL. [Concomitant]
     Active Substance: QUINAPRIL
  4. HUMIRA [Suspect]
     Active Substance: ADALIMUMAB
     Indication: PSORIASIS
     Dosage: ?          QUANTITY:2 INJECTION(S);OTHER FREQUENCY:EVERY OTHER WEEK;?
     Route: 058
     Dates: start: 20161031, end: 20170414
  5. FUROSEMIDE. [Concomitant]
     Active Substance: FUROSEMIDE
  6. KLOR-CON [Concomitant]
     Active Substance: POTASSIUM CHLORIDE
  7. HUMIRA [Concomitant]
     Active Substance: ADALIMUMAB
  8. VITAMIN D [Concomitant]
     Active Substance: CHOLECALCIFEROL

REACTIONS (5)
  - Unevaluable event [None]
  - Psoriasis [None]
  - Psoriatic arthropathy [None]
  - Pain [None]
  - Cyst [None]

NARRATIVE: CASE EVENT DATE: 20170401
